FAERS Safety Report 8282220-1 (Version None)
Quarter: 2012Q2

REPORT INFORMATION
  Report Type: 
  Country: None (occurrence: None)
  Receive Date: 20120413
  Receipt Date: 20120404
  Transmission Date: 20120825
  Serious: Yes (Other)
  Sender: FDA-Public Use
  Company Number: US-ASTRAZENECA-2012SE22430

PATIENT
  Age: 81 Year
  Sex: Male
  Weight: 54.4 kg

DRUGS (1)
  1. NEXIUM [Suspect]
     Indication: BARRETT'S OESOPHAGUS
     Route: 048
     Dates: start: 20080101

REACTIONS (6)
  - BONE NEOPLASM MALIGNANT [None]
  - ERUCTATION [None]
  - DYSPLASIA [None]
  - OFF LABEL USE [None]
  - ABDOMINAL DISTENSION [None]
  - WEIGHT DECREASED [None]
